FAERS Safety Report 10874681 (Version 4)
Quarter: 2016Q3

REPORT INFORMATION
  Report Type: Spontaneous
  Country: DE (occurrence: DE)
  Receive Date: 20150227
  Receipt Date: 20160701
  Transmission Date: 20161109
  Serious: Yes (Death, Other)
  Sender: FDA-Public Use
  Company Number: PHHY2015DE014940

PATIENT
  Age: 77 Year
  Sex: Male
  Weight: 51 kg

DRUGS (4)
  1. XTANDI [Concomitant]
     Active Substance: ENZALUTAMIDE
     Indication: PROSTATE CANCER METASTATIC
     Dosage: 40 MG, QD
     Route: 048
     Dates: start: 20150218
  2. CALCIMAGON [Concomitant]
     Active Substance: CALCIUM
     Indication: PROSTATE CANCER METASTATIC
     Dosage: 2000 MG
     Route: 048
     Dates: start: 20140310
  3. PREDNISOLON [Concomitant]
     Active Substance: PREDNISOLONE
     Indication: PROSTATE CANCER METASTATIC
     Dosage: 8 MG
     Route: 048
     Dates: start: 20150507, end: 20150528
  4. ZOLEDRONATE [Suspect]
     Active Substance: ZOLEDRONIC ACID
     Indication: PROSTATE CANCER METASTATIC
     Dosage: 4 MG/100 ML, QMO (ONCE PER MONTH)
     Route: 042
     Dates: start: 20140324, end: 20150601

REACTIONS (12)
  - Soft tissue infection [Unknown]
  - Swelling [Unknown]
  - Osteitis [Not Recovered/Not Resolved]
  - Tenderness [Unknown]
  - Erythema [Unknown]
  - Exposed bone in jaw [Unknown]
  - Prostate cancer [Fatal]
  - Lymphadenopathy [Unknown]
  - Osteomyelitis [Unknown]
  - Osteonecrosis of jaw [Recovering/Resolving]
  - Lymph node pain [Unknown]
  - Fistula [Unknown]

NARRATIVE: CASE EVENT DATE: 20141007
